FAERS Safety Report 8137711-0 (Version None)
Quarter: 2012Q1

REPORT INFORMATION
  Report Type: 
  Country: None (occurrence: None)
  Receive Date: 20120215
  Receipt Date: 20120214
  Transmission Date: 20120608
  Serious: No
  Sender: FDA-Public Use
  Company Number: US-PFIZER INC-2012040005

PATIENT
  Sex: Female
  Weight: 58.957 kg

DRUGS (10)
  1. CHANTIX [Suspect]
     Indication: SMOKING CESSATION THERAPY
     Dosage: 0.5 MG, 1X/DAY
     Route: 048
     Dates: start: 20120207, end: 20120201
  2. SIMVASTATIN [Concomitant]
     Indication: BLOOD CHOLESTEROL INCREASED
     Dosage: 5 MG, 1X/DAY
  3. FISH OIL [Concomitant]
     Dosage: UNK
  4. VITAMIN D [Concomitant]
     Dosage: UNK
  5. ASPIRIN [Concomitant]
     Dosage: 81 MG, 1X/DAY
  6. CHANTIX [Suspect]
     Dosage: 1 MG, 2X/DAY
     Route: 048
     Dates: start: 20120201
  7. VITAMIN B COMPLEX CAP [Concomitant]
     Dosage: UNK
  8. XANAX [Concomitant]
     Dosage: 0.5 MG, AS NEEDED
     Route: 048
  9. VITAMIN TAB [Concomitant]
     Dosage: UNK
  10. CALCIUM [Concomitant]
     Dosage: UNK

REACTIONS (4)
  - MALAISE [None]
  - VOMITING [None]
  - EMOTIONAL DISORDER [None]
  - NAUSEA [None]
